FAERS Safety Report 23134094 (Version 1)
Quarter: 2023Q4

REPORT INFORMATION
  Report Type: Spontaneous
  Country: US (occurrence: US)
  Receive Date: 20231101
  Receipt Date: 20231101
  Transmission Date: 20240110
  Serious: Yes (Hospitalization)
  Sender: FDA-Public Use
  Company Number: US-BRISTOL-MYERS SQUIBB COMPANY-2023-153000

PATIENT
  Age: 81 Year
  Sex: Female
  Weight: 57.15 kg

DRUGS (1)
  1. LENALIDOMIDE [Suspect]
     Active Substance: LENALIDOMIDE
     Indication: Plasma cell myeloma
     Route: 048
     Dates: start: 20230829

REACTIONS (3)
  - Gout [Recovering/Resolving]
  - Infection [Recovering/Resolving]
  - Product dose omission issue [Unknown]
